FAERS Safety Report 14849088 (Version 1)
Quarter: 2018Q2

REPORT INFORMATION
  Report Type: Spontaneous
  Country: US (occurrence: US)
  Receive Date: 20180504
  Receipt Date: 20180504
  Transmission Date: 20180711
  Serious: Yes (Hospitalization, Disabling, Other)
  Sender: FDA-Public Use
  Company Number: US-TEVA-2018-US-887666

PATIENT
  Age: 44 Year
  Sex: Male

DRUGS (1)
  1. TRAZODONE [Suspect]
     Active Substance: TRAZODONE HYDROCHLORIDE
     Route: 048

REACTIONS (11)
  - Carbon dioxide decreased [Unknown]
  - Blood bicarbonate decreased [Unknown]
  - Painful erection [Unknown]
  - Priapism [Unknown]
  - PO2 decreased [Unknown]
  - Erection increased [Unknown]
  - Oxygen saturation decreased [Unknown]
  - Penis disorder [Unknown]
  - PCO2 increased [Unknown]
  - pH body fluid decreased [Unknown]
  - Erectile dysfunction [Unknown]

NARRATIVE: CASE EVENT DATE: 20171117
